FAERS Safety Report 24124421 (Version 1)
Quarter: 2024Q3

REPORT INFORMATION
  Report Type: Report from Study
  Country: US (occurrence: None)
  Receive Date: 20240723
  Receipt Date: 20240723
  Transmission Date: 20241016
  Serious: Yes (Other)
  Sender: ASTRAZENECA
  Company Number: 2023A123947

PATIENT
  Sex: Female
  Weight: 62.7 kg

DRUGS (1)
  1. CALQUENCE [Suspect]
     Active Substance: ACALABRUTINIB
     Indication: Chronic lymphocytic leukaemia
     Route: 048
     Dates: start: 20220416

REACTIONS (5)
  - Aneurysm [Unknown]
  - Abdominal pain upper [Unknown]
  - Allergy to plants [Unknown]
  - Osteoporosis [Unknown]
  - Sinus disorder [Unknown]
